FAERS Safety Report 9603874 (Version 5)
Quarter: 2014Q2

REPORT INFORMATION
  Report Type: Report from Study
  Country: DE (occurrence: DE)
  Receive Date: 20131008
  Receipt Date: 20140528
  Transmission Date: 20141212
  Serious: Yes (Hospitalization)
  Sender: FDA-Public Use
  Company Number: DE-BIOGENIDEC-2013BI096205

PATIENT
  Age: 63 Year
  Sex: Male

DRUGS (3)
  1. TYSABRI [Suspect]
     Indication: MULTIPLE SCLEROSIS
     Route: 042
     Dates: start: 20080325, end: 201309
  2. PANTOPRAZOL [Concomitant]
     Indication: ANTACID THERAPY
  3. THIAMIN [Concomitant]

REACTIONS (2)
  - Partial seizures [Recovered/Resolved]
  - Bronchitis [Recovered/Resolved]
